FAERS Safety Report 12368806 (Version 1)
Quarter: 2016Q2

REPORT INFORMATION
  Report Type: Spontaneous
  Country: FR (occurrence: FR)
  Receive Date: 20160513
  Receipt Date: 20160513
  Transmission Date: 20160815
  Serious: Yes (Life-Threatening, Hospitalization)
  Sender: FDA-Public Use
  Company Number: FR-ELI_LILLY_AND_COMPANY-FR201605004654

PATIENT
  Sex: Male
  Weight: 92 kg

DRUGS (4)
  1. ERBITUX [Suspect]
     Active Substance: CETUXIMAB
     Indication: PROSTATE CANCER
     Dosage: 400 MG/M2, CYCLICAL
     Route: 042
     Dates: start: 20160421
  2. DEXCHLORPHENIRAMINE [Concomitant]
     Active Substance: DEXCHLORPHENIRAMINE
     Indication: PREMEDICATION
     Dosage: 5 MG, UNK
     Dates: start: 20160421
  3. ERBITUX [Suspect]
     Active Substance: CETUXIMAB
     Dosage: 850 MG, CYCLICAL
     Route: 042
  4. CORDARONE [Concomitant]
     Active Substance: AMIODARONE HYDROCHLORIDE
     Indication: HYPERTHYROIDISM

REACTIONS (2)
  - Oxygen saturation decreased [Not Recovered/Not Resolved]
  - Bronchospasm [Not Recovered/Not Resolved]

NARRATIVE: CASE EVENT DATE: 20160421
